FAERS Safety Report 15978842 (Version 3)
Quarter: 2019Q1

REPORT INFORMATION
  Report Type: Spontaneous
  Country: JP (occurrence: JP)
  Receive Date: 20190219
  Receipt Date: 20190326
  Transmission Date: 20190418
  Serious: Yes (Other)
  Sender: FDA-Public Use
  Company Number: JP-UCBSA-2019006436

PATIENT
  Age: 44 Year
  Sex: Female

DRUGS (14)
  1. NEODOPASTON [Suspect]
     Active Substance: CARBIDOPA\LEVODOPA
     Dosage: 500 MG DAILY
     Route: 048
     Dates: start: 20181226
  2. GRAMALIL [Suspect]
     Active Substance: TIAPRIDE HYDROCHLORIDE
     Indication: PRODUCT USED FOR UNKNOWN INDICATION
     Dosage: 300 MG DAILY
     Route: 048
     Dates: end: 20181218
  3. ENTACAPONE. [Suspect]
     Active Substance: ENTACAPONE
     Indication: PRODUCT USED FOR UNKNOWN INDICATION
     Dosage: 400 MG DAILY
     Route: 048
     Dates: end: 20181218
  4. MAGNESIUM OXIDE. [Concomitant]
     Active Substance: MAGNESIUM OXIDE
     Indication: PRODUCT USED FOR UNKNOWN INDICATION
     Dosage: UNK
     Dates: start: 20181222
  5. NEODOPASTON [Suspect]
     Active Substance: CARBIDOPA\LEVODOPA
     Dosage: 600 MG DAILY
     Route: 048
     Dates: start: 20181219, end: 20181225
  6. GRAMALIL [Suspect]
     Active Substance: TIAPRIDE HYDROCHLORIDE
     Dosage: 200 MG DAILY
     Route: 048
     Dates: start: 20181222, end: 20181228
  7. GRAMALIL [Suspect]
     Active Substance: TIAPRIDE HYDROCHLORIDE
     Dosage: 150 MG DAILY
     Route: 048
     Dates: start: 20181229, end: 20190128
  8. NEUPRO [Suspect]
     Active Substance: ROTIGOTINE
     Dosage: 10 MG, ONCE DAILY (QD)
     Route: 062
     Dates: start: 20181222, end: 20181228
  9. NEODOPASTON [Suspect]
     Active Substance: CARBIDOPA\LEVODOPA
     Indication: PRODUCT USED FOR UNKNOWN INDICATION
     Dosage: 800 MG DAILY
     Route: 048
     Dates: end: 20181218
  10. NEUPRO [Suspect]
     Active Substance: ROTIGOTINE
     Indication: PARKINSON^S DISEASE
     Dosage: 8 MG, ONCE DAILY (QD)
     Route: 062
     Dates: start: 20181229, end: 20190108
  11. NEUPRO [Suspect]
     Active Substance: ROTIGOTINE
     Indication: PARKINSONISM
     Dosage: 12 MG, ONCE DAILY (QD)
     Route: 062
     Dates: end: 20181221
  12. QUETIAPINE. [Suspect]
     Active Substance: QUETIAPINE
     Indication: PRODUCT USED FOR UNKNOWN INDICATION
     Dosage: 150 MG DAILY
     Route: 048
     Dates: end: 20190104
  13. GRAMALIL [Suspect]
     Active Substance: TIAPRIDE HYDROCHLORIDE
     Dosage: 250 MG DAILY
     Route: 048
     Dates: start: 20181219, end: 20181221
  14. ENTACAPONE. [Suspect]
     Active Substance: ENTACAPONE
     Dosage: 300 MG DAILY
     Route: 048
     Dates: start: 20181219, end: 20190104

REACTIONS (1)
  - Sudden onset of sleep [Recovered/Resolved]

NARRATIVE: CASE EVENT DATE: 20190104
